FAERS Safety Report 4919177-4 (Version None)
Quarter: 2006Q1

REPORT INFORMATION
  Report Type: 
  Country: None (occurrence: None)
  Receive Date: 20060113
  Receipt Date: 20050926
  Transmission Date: 20060701
  Serious: No
  Sender: FDA-Public Use
  Company Number: 2005SP002058

PATIENT
  Age: 45 Year
  Sex: Female
  Weight: 53.5244 kg

DRUGS (10)
  1. LUNESTA [Suspect]
     Indication: INSOMNIA
     Dosage: 3 MG;HS;ORAL
     Route: 048
     Dates: start: 20050715, end: 20050721
  2. KLONOPIN [Concomitant]
  3. DIPHENHYDRAMINE [Concomitant]
  4. IBUPROFEN [Concomitant]
  5. COLCHICINE [Concomitant]
  6. MAXZIDE [Concomitant]
  7. PANTOPRAZOLE [Concomitant]
  8. SYNTHROID [Concomitant]
  9. POTASSIUM CHLORIDE [Concomitant]
  10. IMMUNE GLOBULIN INTRAVENOUS (HUMAN) [Concomitant]

REACTIONS (6)
  - DRUG INEFFECTIVE [None]
  - DYSGEUSIA [None]
  - HEADACHE [None]
  - HYPOAESTHESIA ORAL [None]
  - INSOMNIA [None]
  - PAROSMIA [None]
